FAERS Safety Report 11359592 (Version 1)
Quarter: 2015Q3

REPORT INFORMATION
  Report Type: Spontaneous
  Country: US (occurrence: None)
  Receive Date: 20150807
  Receipt Date: 20150807
  Transmission Date: 20151125
  Serious: Yes (Hospitalization)
  Sender: FDA-Public Use
  Company Number: None

PATIENT
  Age: 63 Year
  Sex: Female
  Weight: 80 kg

DRUGS (1)
  1. TAXOL [Suspect]
     Active Substance: PACLITAXEL
     Dates: end: 20111128

REACTIONS (9)
  - Dyspepsia [None]
  - Blood pressure increased [None]
  - Nausea [None]
  - Chest discomfort [None]
  - Vomiting [None]
  - Electrocardiogram ST segment elevation [None]
  - Ventricular hypokinesia [None]
  - Ejection fraction decreased [None]
  - Cold sweat [None]

NARRATIVE: CASE EVENT DATE: 20111204
